FAERS Safety Report 16014705 (Version 2)
Quarter: 2019Q1

REPORT INFORMATION
  Report Type: Spontaneous
  Country: JP (occurrence: JP)
  Receive Date: 20190227
  Receipt Date: 20190227
  Transmission Date: 20190418
  Serious: Yes (Other)
  Sender: FDA-Public Use
  Company Number: PHJP2019JP002467

PATIENT

DRUGS (1)
  1. CICLOSPORIN [Suspect]
     Active Substance: CYCLOSPORINE
     Indication: BONE MARROW TRANSPLANT
     Dosage: UNK
     Route: 065

REACTIONS (3)
  - Stevens-Johnson syndrome [Unknown]
  - Febrile neutropenia [Unknown]
  - Cytomegalovirus viraemia [Unknown]
